FAERS Safety Report 8402223 (Version 4)
Quarter: 2012Q4

REPORT INFORMATION
  Report Type: 
  Country: DE (occurrence: DE)
  Receive Date: 20120213
  Receipt Date: 20121106
  Transmission Date: 20130627
  Serious: Yes (Death)
  Sender: FDA-Public Use
  Company Number: DE-AMGEN-DEUNI2012008369

PATIENT
  Age: 47 Year
  Sex: Female

DRUGS (1)
  1. ROMIPLOSTIM [Suspect]
     Indication: IDIOPATHIC THROMBOCYTOPENIC PURPURA
     Dosage: 200 mug, qwk
     Route: 058
     Dates: start: 20100811, end: 20120206

REACTIONS (2)
  - Pulmonary embolism [Fatal]
  - Haematoma [Unknown]
